FAERS Safety Report 8349523-3 (Version None)
Quarter: 2012Q2

REPORT INFORMATION
  Report Type: 
  Country: None (occurrence: None)
  Receive Date: 20120508
  Receipt Date: 20120508
  Transmission Date: 20120825
  Serious: Yes (Death, Hospitalization)
  Sender: FDA-Public Use
  Company Number: None

PATIENT
  Sex: Male
  Weight: 15.9 kg

DRUGS (6)
  1. DAUNORUBICIN HYDROCHLORIDE [Suspect]
     Dosage: 34 MG
     Dates: end: 20120404
  2. PEG-L ASPARAGINASE (PEGASPARGASE, ONCOSPAR) [Concomitant]
     Dosage: 1700 IU
     Dates: end: 20120331
  3. VINCRISTINE SULFATE [Concomitant]
     Dosage: 2 MG
     Dates: end: 20120404
  4. CYTARABINE [Suspect]
     Dosage: 70 MG
     Dates: end: 20120327
  5. METHOTREXATE [Concomitant]
     Dosage: 12 MG
     Dates: end: 20120405
  6. DEXAMETHASONE [Suspect]
     Dosage: 81 MG
     Dates: end: 20120408

REACTIONS (3)
  - CEREBRAL ASPERGILLOSIS [None]
  - BRAIN STEM SYNDROME [None]
  - NEUTROPENIA [None]
